FAERS Safety Report 6604671-0 (Version None)
Quarter: 2010Q1

REPORT INFORMATION
  Report Type: 
  Country: None (occurrence: None)
  Receive Date: 20100226
  Receipt Date: 20100216
  Transmission Date: 20100710
  Serious: Yes (Other)
  Sender: FDA-Public Use
  Company Number: AU-PFIZER INC-2010020459

PATIENT
  Age: 50 Year

DRUGS (4)
  1. VFEND [Interacting]
     Indication: CEREBRAL FUNGAL INFECTION
     Dosage: 200 MG, 2X/DAY
  2. VFEND [Interacting]
     Indication: FUNGAL RHINITIS
  3. ISONIAZID [Suspect]
     Dosage: UNK
  4. RIFAMPICIN [Interacting]

REACTIONS (5)
  - DRUG INTERACTION [None]
  - FUNGAL INFECTION [None]
  - LIVER FUNCTION TEST ABNORMAL [None]
  - NERVOUS SYSTEM DISORDER [None]
  - NEUROPATHY PERIPHERAL [None]
